FAERS Safety Report 7908753-2 (Version None)
Quarter: 2011Q4

REPORT INFORMATION
  Report Type: 
  Country: None (occurrence: None)
  Receive Date: 20111111
  Receipt Date: 20111107
  Transmission Date: 20120403
  Serious: No
  Sender: FDA-Public Use
  Company Number: US-PFIZER INC-2011275416

PATIENT
  Sex: Male

DRUGS (2)
  1. LYRICA [Suspect]
     Indication: CONVULSION
     Dosage: UNK
  2. LYRICA [Suspect]
     Indication: GLIOBLASTOMA

REACTIONS (1)
  - HYPOAESTHESIA [None]
